FAERS Safety Report 15286501 (Version 1)
Quarter: 2018Q3

REPORT INFORMATION
  Report Type: Spontaneous
  Country: DK (occurrence: DK)
  Receive Date: 20180816
  Receipt Date: 20180816
  Transmission Date: 20181010
  Serious: Yes (Other)
  Sender: FDA-Public Use
  Company Number: PHHY2018DK069457

PATIENT
  Age: 44 Year
  Sex: Male
  Weight: 65 kg

DRUGS (1)
  1. OXALIPLATIN. [Suspect]
     Active Substance: OXALIPLATIN
     Indication: MUCINOUS ADENOCARCINOMA OF APPENDIX
     Dosage: 92 MG/M2, UNK
     Route: 033
     Dates: start: 201702, end: 201705

REACTIONS (7)
  - Malignant neoplasm progression [Unknown]
  - Abdominal pain [Unknown]
  - Abdominal distension [Unknown]
  - Metastases to peritoneum [Unknown]
  - Decreased appetite [Unknown]
  - Encapsulating peritoneal sclerosis [Unknown]
  - Constipation [Unknown]
